FAERS Safety Report 5624616-X (Version None)
Quarter: 2008Q1

REPORT INFORMATION
  Report Type: 
  Country: None (occurrence: None)
  Receive Date: 20080213
  Receipt Date: 20080130
  Transmission Date: 20080703
  Serious: Yes (Other)
  Sender: FDA-Public Use
  Company Number: DE-AMGEN-US147538

PATIENT
  Sex: Female
  Weight: 52 kg

DRUGS (10)
  1. ENBREL [Suspect]
     Indication: RHEUMATOID ARTHRITIS
     Route: 058
     Dates: start: 20020501, end: 20050201
  2. BECONASE [Concomitant]
     Route: 065
  3. THYRONAJOD [Concomitant]
     Route: 065
  4. QUENSYL [Concomitant]
     Route: 065
  5. DECORTIN [Concomitant]
     Route: 065
  6. PLAVIX [Concomitant]
     Route: 065
  7. FUROSEMIDE [Concomitant]
     Route: 065
  8. LANTAREL [Concomitant]
     Indication: RHEUMATOID ARTHRITIS
     Route: 065
     Dates: start: 20010301, end: 20040301
  9. LANTAREL [Concomitant]
     Route: 065
     Dates: start: 20040901
  10. DIGIMERCK [Concomitant]
     Route: 065

REACTIONS (4)
  - MORPHOEA [None]
  - SKIN HYPERPIGMENTATION [None]
  - STASIS DERMATITIS [None]
  - VASCULITIS [None]
